FAERS Safety Report 24195099 (Version 1)
Quarter: 2024Q3

REPORT INFORMATION
  Report Type: Spontaneous
  Country: US (occurrence: US)
  Receive Date: 20240809
  Receipt Date: 20240809
  Transmission Date: 20241017
  Serious: Yes (Other)
  Sender: ANI
  Company Number: US-ANIPHARMA-2024-US-028128

PATIENT
  Age: 47 Year
  Sex: Female

DRUGS (1)
  1. CORTICOTROPIN [Suspect]
     Active Substance: CORTICOTROPIN
     Indication: Eye inflammation
     Dosage: 80 UNITS / DECREASED DOSE OF CORTROPHIN TO HALF (40 UNITS) ON 10-APRIL-2024
     Dates: start: 202403, end: 20240507

REACTIONS (5)
  - Vomiting [Not Recovered/Not Resolved]
  - Substance-induced psychotic disorder [Unknown]
  - Weight decreased [Not Recovered/Not Resolved]
  - Decreased appetite [Not Recovered/Not Resolved]
  - Electrocardiogram QT prolonged [Unknown]

NARRATIVE: CASE EVENT DATE: 20240410
